FAERS Safety Report 24777436 (Version 3)
Quarter: 2025Q1

REPORT INFORMATION
  Report Type: Spontaneous
  Country: PK (occurrence: PK)
  Receive Date: 20241226
  Receipt Date: 20250203
  Transmission Date: 20250409
  Serious: Yes (Other)
  Sender: PFIZER
  Company Number: PK-PFIZER INC-PV202400008178

PATIENT
  Age: 34 Year
  Sex: Female
  Weight: 39 kg

DRUGS (3)
  1. IXIFI [Suspect]
     Active Substance: INFLIXIMAB-QBTX
     Indication: Inflammatory bowel disease
     Route: 042
     Dates: start: 202401
  2. IXIFI [Suspect]
     Active Substance: INFLIXIMAB-QBTX
     Indication: Colitis ulcerative
     Route: 042
     Dates: start: 20241220
  3. AMORA [AMLODIPINE BESILATE;RAMIPRIL] [Concomitant]

REACTIONS (3)
  - Condition aggravated [Recovering/Resolving]
  - Diarrhoea haemorrhagic [Recovering/Resolving]
  - Respiratory tract infection [Recovering/Resolving]

NARRATIVE: CASE EVENT DATE: 20241201
